FAERS Safety Report 12393633 (Version 1)
Quarter: 2016Q2

REPORT INFORMATION
  Report Type: Spontaneous
  Country: US (occurrence: US)
  Receive Date: 20160523
  Receipt Date: 20160523
  Transmission Date: 20160815
  Serious: Yes (Other)
  Sender: FDA-Public Use
  Company Number: US-TAIHO ONCOLOGY INC-EU-2016-01020

PATIENT
  Sex: Female

DRUGS (2)
  1. LONSURF [Suspect]
     Active Substance: TIPIRACIL HYDROCHLORIDE\TRIFLURIDINE
     Indication: COLON CANCER
     Dosage: CYCLE 1 STARTED MARCH 2016
     Route: 048
     Dates: start: 201603
  2. STIVARGA [Concomitant]
     Active Substance: REGORAFENIB
     Dosage: NI

REACTIONS (2)
  - Disease progression [Unknown]
  - Hepatic failure [Unknown]
